FAERS Safety Report 8717533 (Version 2)
Quarter: 2012Q4

REPORT INFORMATION
  Report Type: 
  Country: JP (occurrence: JP)
  Receive Date: 20120810
  Receipt Date: 20120828
  Transmission Date: 20130627
  Serious: Yes (Hospitalization, Other)
  Sender: FDA-Public Use
  Company Number: JP-PFIZER INC-2012193740

PATIENT
  Age: 78 Year
  Sex: Female

DRUGS (1)
  1. SELARA [Suspect]
     Indication: HYPERTENSION
     Dosage: 50 mg, daily
     Route: 048
     Dates: start: 20120630, end: 20120703

REACTIONS (3)
  - Blood pressure increased [Recovered/Resolved]
  - Angina pectoris [Unknown]
  - Hot flush [Recovered/Resolved]
